FAERS Safety Report 11528463 (Version 1)
Quarter: 2015Q3

REPORT INFORMATION
  Report Type: Spontaneous
  Country: US (occurrence: US)
  Receive Date: 20150921
  Receipt Date: 20150921
  Transmission Date: 20151125
  Serious: Yes (Other)
  Sender: FDA-Public Use
  Company Number: US-TEVA-585538USA

PATIENT
  Age: 75 Year
  Sex: Female
  Weight: 90.8 kg

DRUGS (1)
  1. CLONAZEPAM. [Suspect]
     Active Substance: CLONAZEPAM
     Dosage: 2 MILLIGRAM DAILY;

REACTIONS (9)
  - Memory impairment [Unknown]
  - Anxiety [Unknown]
  - Insomnia [Unknown]
  - Slow speech [Unknown]
  - Somnolence [Unknown]
  - Emotional disorder [Unknown]
  - Suicidal ideation [Unknown]
  - Confusional state [Unknown]
  - Malaise [Unknown]

NARRATIVE: CASE EVENT DATE: 20150809
